FAERS Safety Report 18718555 (Version 3)
Quarter: 2021Q3

REPORT INFORMATION
  Report Type: Report from Study
  Country: JP (occurrence: JP)
  Receive Date: 20210108
  Receipt Date: 20210712
  Transmission Date: 20211014
  Serious: Yes (Death, Other)
  Sender: FDA-Public Use
  Company Number: JP-BRISTOL-MYERS SQUIBB COMPANY-BMS-2015-088942

PATIENT
  Age: 83 Year
  Sex: Male
  Weight: 69 kg

DRUGS (2)
  1. NIVOLUMAB [Suspect]
     Active Substance: NIVOLUMAB
     Indication: MALIGNANT MELANOMA
     Dosage: 2 MG/KG/DAY
     Route: 042
     Dates: start: 20150107, end: 20150604
  2. NIVOLUMAB [Suspect]
     Active Substance: NIVOLUMAB
     Dosage: 2 MG/KG/DAY
     Route: 042
     Dates: start: 20150219, end: 20150219

REACTIONS (2)
  - Malignant neoplasm progression [Fatal]
  - Immune-mediated hepatic disorder [Unknown]

NARRATIVE: CASE EVENT DATE: 20150219
